FAERS Safety Report 10593988 (Version 1)
Quarter: 2014Q4

REPORT INFORMATION
  Report Type: Report from Study
  Country: JP (occurrence: JP)
  Receive Date: 20141119
  Receipt Date: 20141119
  Transmission Date: 20150529
  Serious: Yes (Death)
  Sender: FDA-Public Use
  Company Number: JP-EISAI MEDICAL RESEARCH-EC-2014-001789

PATIENT
  Age: 88 Year
  Sex: Female

DRUGS (12)
  1. MUCODYNE [Concomitant]
     Active Substance: CARBOCYSTEINE
  2. ARICEPT [Suspect]
     Active Substance: DONEPEZIL HYDROCHLORIDE
     Indication: DEMENTIA ALZHEIMER^S TYPE
     Route: 048
     Dates: start: 20140124, end: 20140205
  3. BASEN [Concomitant]
     Active Substance: VOGLIBOSE
  4. ADALAT [Concomitant]
     Active Substance: NIFEDIPINE
  5. ZOPICOOL [Concomitant]
     Active Substance: ZOPICLONE
  6. THEO-DUR [Concomitant]
     Active Substance: THEOPHYLLINE ANHYDROUS
  7. ARICEPT [Suspect]
     Active Substance: DONEPEZIL HYDROCHLORIDE
     Route: 048
     Dates: start: 20140206, end: 20141028
  8. RINPRAL [Concomitant]
     Active Substance: EPERISONE
  9. ADOAIR [Concomitant]
     Active Substance: FLUTICASONE PROPIONATE\SALMETEROL XINAFOATE
  10. MUCOSTA [Concomitant]
     Active Substance: REBAMIPIDE
  11. NIPOLAZIN [Concomitant]
  12. ALFAROL [Concomitant]
     Active Substance: ALFACALCIDOL

REACTIONS (1)
  - Subarachnoid haemorrhage [Fatal]

NARRATIVE: CASE EVENT DATE: 20141029
